FAERS Safety Report 15154672 (Version 3)
Quarter: 2020Q1

REPORT INFORMATION
  Report Type: Spontaneous
  Country: US (occurrence: US)
  Receive Date: 20180717
  Receipt Date: 20200113
  Transmission Date: 20200409
  Serious: No
  Sender: FDA-Public Use
  Company Number: US-APOTEX-2018AP008975

PATIENT
  Age: 51 Year
  Sex: Female

DRUGS (12)
  1. ATORVASTATIN CALCIUM. [Interacting]
     Active Substance: ATORVASTATIN CALCIUM
     Dosage: 20 MG, UNK
     Route: 065
  2. CLARITHROMYCIN. [Interacting]
     Active Substance: CLARITHROMYCIN
     Dosage: UNK, QD
     Route: 048
     Dates: start: 20190601, end: 20191130
  3. BIAXIN [Concomitant]
     Active Substance: CLARITHROMYCIN
     Dosage: 500 MG, UNK
     Route: 065
  4. LIPITOR [Concomitant]
     Active Substance: ATORVASTATIN CALCIUM
     Indication: BLOOD CHOLESTEROL
     Dosage: UNK, QD
     Route: 065
     Dates: start: 2019
  5. METOPROLOL. [Concomitant]
     Active Substance: METOPROLOL
     Indication: HYPERTENSION
     Dosage: UNK, QD
     Route: 065
  6. ATORVASTATIN CALCIUM. [Interacting]
     Active Substance: ATORVASTATIN CALCIUM
     Indication: CEREBROVASCULAR ACCIDENT
     Dosage: 80 MG, UNK
     Route: 048
     Dates: start: 20170504, end: 20180303
  7. PLAVIX [Concomitant]
     Active Substance: CLOPIDOGREL BISULFATE
     Indication: CEREBROVASCULAR ACCIDENT
     Dosage: 75 MG, UNK
     Route: 065
  8. CLARITHROMYCIN. [Interacting]
     Active Substance: CLARITHROMYCIN
     Indication: LYME DISEASE
     Dosage: 500 MG, UNK
     Route: 065
  9. ATORVASTATIN CALCIUM. [Suspect]
     Active Substance: ATORVASTATIN CALCIUM
     Indication: BLOOD CHOLESTEROL INCREASED
     Dosage: 80 MG, UNK
     Route: 048
     Dates: end: 2018
  10. BIAXIN [Concomitant]
     Active Substance: CLARITHROMYCIN
     Indication: LYME DISEASE
     Dosage: 250 MG, UNK
     Route: 065
  11. DOXYCYCLINE. [Concomitant]
     Active Substance: DOXYCYCLINE
     Indication: PRODUCT USED FOR UNKNOWN INDICATION
     Dosage: UNK
     Route: 065
  12. XANAX [Concomitant]
     Active Substance: ALPRAZOLAM
     Indication: ANXIETY
     Dosage: ONCE OR TWICE A WEEK, ABOUT A YEAR
     Route: 065

REACTIONS (17)
  - Blood pressure increased [Unknown]
  - Product prescribing error [Unknown]
  - Vision blurred [Unknown]
  - Muscular weakness [Recovering/Resolving]
  - Gait disturbance [Not Recovered/Not Resolved]
  - Tremor [Not Recovered/Not Resolved]
  - Drug interaction [Unknown]
  - Loss of personal independence in daily activities [Not Recovered/Not Resolved]
  - Feeling abnormal [Unknown]
  - Anxiety [Not Recovered/Not Resolved]
  - Heart rate increased [Unknown]
  - Memory impairment [Recovering/Resolving]
  - Arthralgia [Unknown]
  - Dysarthria [Not Recovered/Not Resolved]
  - Extra dose administered [Unknown]
  - Drug metabolising enzyme decreased [Unknown]
  - Panic attack [Not Recovered/Not Resolved]

NARRATIVE: CASE EVENT DATE: 20170911
